FAERS Safety Report 13059501 (Version 1)
Quarter: 2016Q4

REPORT INFORMATION
  Report Type: Spontaneous
  Country: CH (occurrence: CH)
  Receive Date: 20161223
  Receipt Date: 20161223
  Transmission Date: 20170207
  Serious: Yes (Hospitalization)
  Sender: FDA-Public Use
  Company Number: CH-009507513-1612CHE011395

PATIENT
  Age: 86 Year
  Sex: Female

DRUGS (12)
  1. SINTROM [Concomitant]
     Active Substance: ACENOCOUMAROL
  2. ENALAPRIL MALEATE. [Concomitant]
     Active Substance: ENALAPRIL MALEATE
  3. VENLAFAXINE HYDROCHLORIDE. [Interacting]
     Active Substance: VENLAFAXINE HYDROCHLORIDE
     Dosage: 75 MG, QD
     Route: 048
     Dates: start: 20160912, end: 20161124
  4. SEVREDOL [Interacting]
     Active Substance: MORPHINE
     Dosage: 10 MG, Q4H
     Route: 048
     Dates: start: 20161114, end: 20161124
  5. MYDOCALM (TOLPERISONE HYDROCHLORIDE) [Interacting]
     Active Substance: TOLPERISONE HYDROCHLORIDE
     Dosage: 50 MG, TID
     Route: 048
     Dates: start: 20161123, end: 20161130
  6. LAXOBERON [Concomitant]
     Active Substance: SODIUM PICOSULFATE
  7. MYDOCALM (TOLPERISONE HYDROCHLORIDE) [Concomitant]
     Dosage: 87.5 MG
     Route: 048
     Dates: start: 20161121, end: 20161121
  8. REMERON [Suspect]
     Active Substance: MIRTAZAPINE
     Dosage: 7.5 MG, QD
     Route: 048
     Dates: start: 20161130, end: 20161205
  9. DAFALGAN [Concomitant]
     Active Substance: ACETAMINOPHEN
  10. MYDOCALM (TOLPERISONE HYDROCHLORIDE) [Concomitant]
     Dosage: 125 MG
     Route: 048
     Dates: start: 20161122, end: 20161122
  11. PREDNISONE. [Concomitant]
     Active Substance: PREDNISONE
  12. PURSANA [Concomitant]
     Active Substance: FIG FRUIT OIL\SORBITOL

REACTIONS (13)
  - Toxicity to various agents [None]
  - Delirium [None]
  - Hypotonia [Recovered/Resolved]
  - Hypertonia [Recovered/Resolved]
  - Rash erythematous [Unknown]
  - Drug interaction [None]
  - Somnolence [None]
  - Psychotic disorder [Recovered/Resolved]
  - Serotonin syndrome [Recovered/Resolved]
  - Incorrect dose administered [None]
  - Confusional state [Recovered/Resolved]
  - Depression [None]
  - Toxic skin eruption [None]

NARRATIVE: CASE EVENT DATE: 20161124
